FAERS Safety Report 8945363 (Version 1)
Quarter: 2012Q4

REPORT INFORMATION
  Report Type: 
  Country: US (occurrence: US)
  Receive Date: 20121204
  Receipt Date: 20121204
  Transmission Date: 20130627
  Serious: No
  Sender: FDA-Public Use
  Company Number: US-AMGEN-USASP2012073970

PATIENT
  Age: 57 Year
  Sex: Female

DRUGS (2)
  1. ENBREL [Suspect]
     Indication: PSORIATIC ARTHROPATHY
     Dosage: 50 mg, qwk
     Dates: start: 20120515
  2. METHOTREXATE [Concomitant]
     Dosage: 2.5 mg, 6 tabs/weekly

REACTIONS (1)
  - Hepatic enzyme increased [Not Recovered/Not Resolved]
